FAERS Safety Report 16149785 (Version 2)
Quarter: 2019Q2

REPORT INFORMATION
  Report Type: Spontaneous
  Country: US (occurrence: US)
  Receive Date: 20190403
  Receipt Date: 20190501
  Transmission Date: 20190711
  Serious: No
  Sender: FDA-Public Use
  Company Number: US-ASTRAZENECA-2019SE41681

PATIENT
  Age: 52 Year
  Sex: Male

DRUGS (1)
  1. FASENRA [Suspect]
     Active Substance: BENRALIZUMAB
     Indication: ASTHMA
     Dosage: 30 MG EVERY 4 WEEKS FOR THE FIRST 3 DOSES AND THEN EVERY EIGHT WEEKS THEREAFTER
     Route: 058
     Dates: start: 20180430

REACTIONS (1)
  - Asthma [Not Recovered/Not Resolved]
